FAERS Safety Report 9155186 (Version 2)
Quarter: 2013Q2

REPORT INFORMATION
  Report Type: Spontaneous
  Country: US (occurrence: US)
  Receive Date: 20130311
  Receipt Date: 20130409
  Transmission Date: 20140414
  Serious: Yes (Disabling, Other)
  Sender: FDA-Public Use
  Company Number: US-ASTRAZENECA-2013SE15376

PATIENT
  Age: 456 Month
  Sex: Female
  Weight: 106.6 kg

DRUGS (15)
  1. SEROQUEL [Suspect]
     Indication: AFFECTIVE DISORDER
     Dosage: 75 MG QID, 800 MG HS
     Route: 048
  2. SEROQUEL [Suspect]
     Indication: POST-TRAUMATIC STRESS DISORDER
     Dosage: 75 MG QID, 800 MG HS
     Route: 048
  3. SEROQUEL [Suspect]
     Indication: MOOD SWINGS
     Dosage: 75 MG QID, 800 MG HS
     Route: 048
  4. SEROQUEL [Suspect]
     Indication: AFFECTIVE DISORDER
     Route: 048
  5. SEROQUEL [Suspect]
     Indication: POST-TRAUMATIC STRESS DISORDER
     Route: 048
  6. SEROQUEL [Suspect]
     Indication: MOOD SWINGS
     Route: 048
  7. SAPHRIS [Suspect]
     Dosage: 5 MG QAM, 10 MG HS
     Route: 065
  8. ROBAXIN [Concomitant]
     Route: 048
  9. DEPAKOTE ER [Concomitant]
     Route: 048
  10. BUSPAR [Concomitant]
     Route: 048
  11. TOPAMAX [Concomitant]
     Route: 048
  12. ATARAX [Concomitant]
     Route: 048
  13. RELPAX [Concomitant]
     Route: 048
  14. CELEXA [Concomitant]
     Route: 048
  15. NEURONTIN [Concomitant]
     Dates: start: 20120716

REACTIONS (4)
  - Tardive dyskinesia [Not Recovered/Not Resolved]
  - Convulsion [Unknown]
  - Withdrawal syndrome [Unknown]
  - Off label use [Unknown]
